FAERS Safety Report 5585277-1 (Version None)
Quarter: 2008Q1

REPORT INFORMATION
  Report Type: 
  Country: None (occurrence: None)
  Receive Date: 20080108
  Receipt Date: 20080108
  Transmission Date: 20080703
  Serious: Yes (Other)
  Sender: FDA-Public Use
  Company Number: None

PATIENT
  Age: 51 Year
  Sex: Female

DRUGS (8)
  1. REBIF [Suspect]
     Dates: start: 20061130, end: 20070310
  2. TOPAMAX [Concomitant]
  3. MOTRIN [Concomitant]
  4. TYLENOL [Concomitant]
  5. XANAX [Concomitant]
  6. ASCORBIC ACID [Concomitant]
  7. VITAMIN D [Concomitant]
  8. AMOCOR [Concomitant]

REACTIONS (3)
  - HEPATOTOXICITY [None]
  - LIVER INJURY [None]
  - MYALGIA [None]
